FAERS Safety Report 12673278 (Version 1)
Quarter: 2016Q3

REPORT INFORMATION
  Report Type: Report from Study
  Country: GB (occurrence: GB)
  Receive Date: 20160822
  Receipt Date: 20160822
  Transmission Date: 20161109
  Serious: Yes (Hospitalization)
  Sender: FDA-Public Use
  Company Number: GB-JNJFOC-20160810377

PATIENT
  Age: 35 Year
  Sex: Male
  Weight: 98 kg

DRUGS (2)
  1. SERTRALINE [Concomitant]
     Active Substance: SERTRALINE HYDROCHLORIDE
     Route: 065
     Dates: start: 20130218
  2. STELARA [Suspect]
     Active Substance: USTEKINUMAB
     Indication: PSORIASIS
     Route: 058
     Dates: start: 20130404

REACTIONS (6)
  - Mental disorder [Unknown]
  - Peripheral nerve injury [Unknown]
  - Wound [Unknown]
  - Abnormal behaviour [Unknown]
  - Muscle injury [Unknown]
  - Depression [Unknown]

NARRATIVE: CASE EVENT DATE: 20140820
